FAERS Safety Report 8044060-8 (Version None)
Quarter: 2012Q1

REPORT INFORMATION
  Report Type: 
  Country: None (occurrence: None)
  Receive Date: 20120111
  Receipt Date: 20120111
  Transmission Date: 20120608
  Serious: No
  Sender: FDA-Public Use
  Company Number: None

PATIENT
  Sex: Male
  Weight: 91.1 kg

DRUGS (3)
  1. ERBITUX [Suspect]
     Dosage: 1378 MG
     Dates: end: 20100113
  2. TAXOL [Suspect]
     Dosage: 424 MG
     Dates: end: 20100106
  3. CARBOPLATIN [Suspect]
     Dosage: 622 MG
     Dates: end: 20100106

REACTIONS (2)
  - DERMATITIS ACNEIFORM [None]
  - PAIN IN EXTREMITY [None]
